APPROVED DRUG PRODUCT: DONEPEZIL HYDROCHLORIDE
Active Ingredient: DONEPEZIL HYDROCHLORIDE
Strength: 10MG
Dosage Form/Route: TABLET, ORALLY DISINTEGRATING;ORAL
Application: A090175 | Product #002
Applicant: ZYDUS PHARMACEUTICALS USA INC
Approved: May 10, 2011 | RLD: No | RS: No | Type: DISCN